FAERS Safety Report 8883624 (Version 1)
Quarter: 2012Q4

REPORT INFORMATION
  Report Type: 
  Country: US (occurrence: US)
  Receive Date: 20121102
  Receipt Date: 20121102
  Transmission Date: 20130627
  Serious: No
  Sender: FDA-Public Use
  Company Number: US-ASTRAZENECA-2012SE01395

PATIENT
  Age: 68 Year
  Sex: Male
  Weight: 108.9 kg

DRUGS (18)
  1. CRESTOR [Suspect]
     Route: 048
  2. RANITIDINE [Concomitant]
  3. TRAMADOL [Concomitant]
  4. ALPRAZOLAM [Concomitant]
  5. NITROLINGUAL [Concomitant]
  6. NITROSTAT [Concomitant]
  7. CELEXA [Concomitant]
  8. AMIODARONE [Concomitant]
  9. BACLOFEN [Concomitant]
  10. TYLENOL [Concomitant]
  11. COLACE [Concomitant]
  12. SULFAMETH [Concomitant]
  13. NIASPAN [Concomitant]
  14. ASPIRIN [Concomitant]
  15. CYMBALTA [Concomitant]
  16. PHENERGAN [Concomitant]
  17. FLECTOR [Concomitant]
  18. LORTAB [Concomitant]

REACTIONS (3)
  - Back pain [Unknown]
  - Depression [Unknown]
  - Asthenia [Unknown]
